FAERS Safety Report 15823786 (Version 5)
Quarter: 2019Q3

REPORT INFORMATION
  Report Type: Spontaneous
  Country: US (occurrence: US)
  Receive Date: 20190114
  Receipt Date: 20190823
  Transmission Date: 20191004
  Serious: Yes (Other)
  Sender: FDA-Public Use
  Company Number: US-PFIZER INC-2019018411

PATIENT
  Age: 45 Year
  Sex: Male

DRUGS (2)
  1. LYRICA [Suspect]
     Active Substance: PREGABALIN
     Indication: EPILEPSY
     Dosage: 300 MG, UNK
  2. LYRICA [Suspect]
     Active Substance: PREGABALIN
     Dosage: 900 MG, DAILY (1 CAPSULE IN MORNING AND 2 CAPSULES IN EVENING)

REACTIONS (3)
  - Seizure [Unknown]
  - Nervousness [Unknown]
  - Prescribed overdose [Unknown]
